FAERS Safety Report 25621624 (Version 1)
Quarter: 2025Q3

REPORT INFORMATION
  Report Type: Spontaneous
  Country: US (occurrence: US)
  Receive Date: 20250730
  Receipt Date: 20250730
  Transmission Date: 20251021
  Serious: No
  Sender: ROCHE
  Company Number: US-ROCHE-10000343875

PATIENT
  Age: 34 Year
  Sex: Female

DRUGS (3)
  1. XOLAIR PFS [Suspect]
     Active Substance: OMALIZUMAB
     Indication: Idiopathic urticaria
     Route: 058
     Dates: start: 202010
  2. XOLAIR PFS [Suspect]
     Active Substance: OMALIZUMAB
     Dosage: (EITHER IN APR OR MAY-2025)
     Route: 058
     Dates: start: 2025
  3. XOLAIR [Suspect]
     Active Substance: OMALIZUMAB
     Indication: Product used for unknown indication
     Route: 065
     Dates: start: 2016

REACTIONS (10)
  - Device malfunction [Unknown]
  - Injection site reaction [Unknown]
  - Injection site pain [Unknown]
  - Product quality issue [Unknown]
  - Product dose omission issue [Unknown]
  - Accidental exposure to product [Unknown]
  - Contusion [Unknown]
  - Wound [Unknown]
  - Product communication issue [Unknown]
  - Drug delivery system malfunction [Unknown]

NARRATIVE: CASE EVENT DATE: 20250719
